FAERS Safety Report 18778697 (Version 1)
Quarter: 2021Q1

REPORT INFORMATION
  Report Type: Report from Study
  Country: US (occurrence: US)
  Receive Date: 20210124
  Receipt Date: 20210124
  Transmission Date: 20210419
  Serious: Yes (Death, Other)
  Sender: FDA-Public Use
  Company Number: US-ADVANZ PHARMA-202012011402

PATIENT

DRUGS (10)
  1. METOPROLOL (ER) [Suspect]
     Active Substance: METOPROLOL
     Dosage: UNK
     Route: 048
  2. ACETAMINOPHEN/BUTALBITAL/CAFFEINE [Suspect]
     Active Substance: ACETAMINOPHEN\BUTALBITAL\CAFFEINE
     Dosage: UNK
     Route: 048
  3. HYPOCHLORITE [Suspect]
     Active Substance: SODIUM HYPOCHLORITE
     Dosage: UNK
     Route: 048
  4. IBUPROFEN. [Suspect]
     Active Substance: IBUPROFEN
     Dosage: UNK
     Route: 048
  5. DIGOXIN. [Suspect]
     Active Substance: DIGOXIN
     Dosage: UNK
     Route: 048
  6. ESCITAOPRAM [Suspect]
     Active Substance: ESCITALOPRAM OXALATE
     Dosage: UNK
     Route: 048
  7. HYDROCHLOROTHIAZIDE. [Suspect]
     Active Substance: HYDROCHLOROTHIAZIDE
     Dosage: UNK
     Route: 048
  8. TIZANIDINE. [Suspect]
     Active Substance: TIZANIDINE
     Dosage: UNK
     Route: 048
  9. GABAPENTIN. [Suspect]
     Active Substance: GABAPENTIN
     Dosage: UNK
     Route: 048
  10. ALPRAZOLAM. [Suspect]
     Active Substance: ALPRAZOLAM
     Dosage: UNK
     Route: 048

REACTIONS (2)
  - Cardio-respiratory arrest [Fatal]
  - Completed suicide [Fatal]
